FAERS Safety Report 9740066 (Version 3)
Quarter: 2014Q1

REPORT INFORMATION
  Report Type: Spontaneous
  Country: US (occurrence: US)
  Receive Date: 20131209
  Receipt Date: 20140205
  Transmission Date: 20141002
  Serious: Yes (Other)
  Sender: FDA-Public Use
  Company Number: US-GLAXOSMITHKLINE-A1051867A

PATIENT
  Sex: Female

DRUGS (9)
  1. VENTOLIN [Suspect]
     Indication: ASTHMA
     Dosage: 2PUFF AS REQUIRED
     Route: 055
  2. BLOOD PRESSURE MEDICATION [Concomitant]
  3. CARBIDOPA [Concomitant]
  4. LOPRESSOR [Concomitant]
  5. MULTIVITAMIN [Concomitant]
  6. LORAZEPAM [Concomitant]
  7. OMEGA 3 FISH OIL [Concomitant]
  8. ASPIRIN [Concomitant]
  9. OXYGEN [Concomitant]

REACTIONS (5)
  - Blindness [Unknown]
  - Cataract [Unknown]
  - Asthma [Unknown]
  - Drug administration error [Unknown]
  - Product quality issue [Unknown]
